FAERS Safety Report 9113144 (Version 2)
Quarter: 2013Q2

REPORT INFORMATION
  Report Type: Spontaneous
  Country: FR (occurrence: FR)
  Receive Date: 20130211
  Receipt Date: 20130503
  Transmission Date: 20140414
  Serious: Yes (Life-Threatening, Hospitalization, Other)
  Sender: FDA-Public Use
  Company Number: FR-ASTRAZENECA-2013SE08944

PATIENT
  Age: 27229 Day
  Sex: Male

DRUGS (3)
  1. CRESTOR [Suspect]
     Indication: HYPERCHOLESTEROLAEMIA
     Route: 048
     Dates: end: 20121221
  2. CORDARONE [Suspect]
     Indication: ATRIAL FIBRILLATION
     Route: 048
     Dates: start: 2010, end: 20121221
  3. PRADAXA [Suspect]
     Route: 048
     Dates: end: 20121221

REACTIONS (10)
  - Respiratory distress [Recovered/Resolved]
  - Alveolitis allergic [Unknown]
  - Pneumonia [Unknown]
  - Atrial fibrillation [Unknown]
  - Cardiomyopathy [Unknown]
  - Neuromyopathy [Unknown]
  - Malnutrition [Unknown]
  - General physical health deterioration [Unknown]
  - Decubitus ulcer [Unknown]
  - Photosensitivity reaction [Unknown]
